FAERS Safety Report 6926590-2 (Version None)
Quarter: 2010Q3

REPORT INFORMATION
  Report Type: 
  Country: None (occurrence: None)
  Receive Date: 20100816
  Receipt Date: 20100521
  Transmission Date: 20110219
  Serious: No
  Sender: FDA-Public Use
  Company Number: US-ABBOTT-10P-163-0647299-00

PATIENT
  Age: 67 Year
  Sex: Female

DRUGS (4)
  1. SIMCOR [Suspect]
     Indication: BLOOD CHOLESTEROL INCREASED
     Dosage: 500/20 MG
     Route: 048
     Dates: start: 20080101
  2. SIMCOR [Suspect]
     Indication: ARTERIOSCLEROSIS
  3. EVISTA [Concomitant]
     Indication: OSTEOPOROSIS
     Route: 048
     Dates: start: 20080101
  4. EVISTA [Concomitant]
     Indication: BONE DENSITY DECREASED

REACTIONS (3)
  - FLUSHING [None]
  - GENITAL ERYTHEMA [None]
  - PRURITUS GENITAL [None]
